FAERS Safety Report 13305932 (Version 1)
Quarter: 2017Q1

REPORT INFORMATION
  Report Type: Report from Study
  Country: US (occurrence: US)
  Receive Date: 20170308
  Receipt Date: 20170308
  Transmission Date: 20170428
  Serious: Yes (Hospitalization, Other)
  Sender: FDA-Public Use
  Company Number: US-JNJFOC-20170307585

PATIENT
  Age: 73 Year
  Sex: Female

DRUGS (9)
  1. BUMEX [Concomitant]
     Active Substance: BUMETANIDE
  2. BENZONATATE. [Concomitant]
     Active Substance: BENZONATATE
  3. MIRALAX [Concomitant]
     Active Substance: POLYETHYLENE GLYCOL 3350
  4. ELIQUIS [Concomitant]
     Active Substance: APIXABAN
  5. AMIODARONE [Concomitant]
     Active Substance: AMIODARONE
  6. NORVASC [Concomitant]
     Active Substance: AMLODIPINE BESYLATE
  7. LOSARTAN. [Concomitant]
     Active Substance: LOSARTAN
  8. IMBRUVICA [Suspect]
     Active Substance: IBRUTINIB
     Indication: NEOPLASM MALIGNANT
     Route: 048
     Dates: start: 20160702
  9. GABAPENTIN. [Concomitant]
     Active Substance: GABAPENTIN

REACTIONS (2)
  - Hospitalisation [Recovered/Resolved]
  - Myocardial infarction [Recovered/Resolved]

NARRATIVE: CASE EVENT DATE: 20161220
